FAERS Safety Report 9125630 (Version 2)
Quarter: 2013Q1

REPORT INFORMATION
  Report Type: Spontaneous
  Country: US (occurrence: US)
  Receive Date: 20130121
  Receipt Date: 20130301
  Transmission Date: 20140127
  Serious: Yes (Hospitalization)
  Sender: FDA-Public Use
  Company Number: US-AMGEN-USASP2013000453

PATIENT
  Age: 73 Year
  Sex: Female
  Weight: 106 kg

DRUGS (6)
  1. PROLIA [Suspect]
     Indication: OSTEOPOROSIS POSTMENOPAUSAL
     Dosage: 60 MG/ML, Q6MO
     Route: 030
     Dates: start: 20121227
  2. SYNTHROID [Concomitant]
     Dosage: 100 MUG, UNK
     Route: 048
  3. SPIRIVA [Concomitant]
     Route: 055
  4. TRAZODONE [Concomitant]
     Route: 048
  5. GABAPENTIN [Concomitant]
     Route: 048
  6. HEROIN [Concomitant]
     Route: 030

REACTIONS (1)
  - Metastases to central nervous system [Unknown]
